FAERS Safety Report 5858273-4 (Version None)
Quarter: 2008Q3

REPORT INFORMATION
  Report Type: 
  Country: None (occurrence: None)
  Receive Date: 20080826
  Receipt Date: 20080821
  Transmission Date: 20090109
  Serious: Yes (Death, Hospitalization)
  Sender: FDA-Public Use
  Company Number: A0744317A

PATIENT
  Age: 60 Year
  Sex: Male
  Weight: 65.9 kg

DRUGS (1)
  1. AVANDIA [Suspect]
     Dosage: 4MG TWICE PER DAY
     Route: 048
     Dates: start: 20020101, end: 20071005

REACTIONS (4)
  - CARDIAC DISORDER [None]
  - DEATH [None]
  - LIVER DISORDER [None]
  - LUNG DISORDER [None]
